FAERS Safety Report 6676703-5 (Version None)
Quarter: 2010Q2

REPORT INFORMATION
  Report Type: 
  Country: None (occurrence: None)
  Receive Date: 20100412
  Receipt Date: 20100401
  Transmission Date: 20101027
  Serious: Yes (Other)
  Sender: FDA-Public Use
  Company Number: US-ROCHE-651285

PATIENT
  Age: 72 Year
  Sex: Female

DRUGS (9)
  1. BONIVA [Suspect]
     Indication: OSTEOPENIA
     Dosage: INDICATION AS: OSTEOPENIA OR OSTEOPOROSIS
     Route: 048
     Dates: start: 20070101, end: 20090716
  2. GELATIN [Concomitant]
  3. VITAMIN B-12 [Concomitant]
  4. SIMVASTATIN [Concomitant]
  5. VITAMIN C [Concomitant]
  6. MULTIVITAMIN NOS [Concomitant]
  7. ENABLEX [Concomitant]
  8. MIACALCIN [Concomitant]
  9. CALCIUM [Concomitant]

REACTIONS (4)
  - ARTHROPATHY [None]
  - EPISTAXIS [None]
  - OEDEMA PERIPHERAL [None]
  - PAIN IN EXTREMITY [None]
